FAERS Safety Report 24093954 (Version 1)
Quarter: 2024Q3

REPORT INFORMATION
  Report Type: Spontaneous
  Country: US (occurrence: US)
  Receive Date: 20240716
  Receipt Date: 20240716
  Transmission Date: 20241017
  Serious: Yes (Hospitalization)
  Sender: NOVO NORDISK
  Company Number: US-NOVOPROD-1251494

PATIENT
  Age: 64 Year
  Sex: Female

DRUGS (1)
  1. OZEMPIC [Suspect]
     Active Substance: SEMAGLUTIDE
     Indication: Type 2 diabetes mellitus
     Dosage: 0.5 MG
     Route: 058
     Dates: start: 20240412, end: 20240614

REACTIONS (11)
  - Cerebrovascular accident [Unknown]
  - Alopecia [Unknown]
  - Gout [Unknown]
  - Visual impairment [Unknown]
  - Decreased appetite [Unknown]
  - Nausea [Unknown]
  - Taste disorder [Unknown]
  - Fatigue [Unknown]
  - Diarrhoea [Unknown]
  - Abdominal pain [Unknown]
  - Eructation [Unknown]

NARRATIVE: CASE EVENT DATE: 20240619
